FAERS Safety Report 8113392-7 (Version None)
Quarter: 2012Q1

REPORT INFORMATION
  Report Type: 
  Country: None (occurrence: None)
  Receive Date: 20120203
  Receipt Date: 20120130
  Transmission Date: 20120608
  Serious: Yes (Life-Threatening, Hospitalization)
  Sender: FDA-Public Use
  Company Number: PHHY2011US55124

PATIENT
  Sex: Male
  Weight: 35 kg

DRUGS (8)
  1. EXJADE [Suspect]
     Dosage: 1000 MG, QD
     Route: 048
  2. CLONIDINE [Concomitant]
     Indication: HYPERTENSION
     Route: 048
  3. LOVENOX [Concomitant]
     Indication: DEEP VEIN THROMBOSIS
     Dosage: 40 MG, UNK
     Route: 058
  4. ACETAMINOPHEN [Concomitant]
     Indication: PAIN
     Route: 048
  5. PROPRANOLOL [Concomitant]
     Indication: HYPERTENSION
     Route: 048
     Dates: start: 20110503
  6. KEPPRA [Concomitant]
  7. EXJADE [Suspect]
     Dosage: 1250 MG, QD
     Route: 048
  8. COLACE [Concomitant]
     Indication: CONSTIPATION
     Route: 048

REACTIONS (8)
  - GAIT DISTURBANCE [None]
  - HEADACHE [None]
  - HYPOKINESIA [None]
  - BALANCE DISORDER [None]
  - APHASIA [None]
  - CEREBROVASCULAR ACCIDENT [None]
  - SPEECH DISORDER [None]
  - DYSPHAGIA [None]
